FAERS Safety Report 13752737 (Version 1)
Quarter: 2017Q3

REPORT INFORMATION
  Report Type: Spontaneous
  Country: SE (occurrence: SE)
  Receive Date: 20170714
  Receipt Date: 20170714
  Transmission Date: 20171127
  Serious: Yes (Hospitalization)
  Sender: FDA-Public Use
  Company Number: SE-TEVA-785139ISR

PATIENT
  Age: 59 Year
  Sex: Male

DRUGS (1)
  1. RISPERIDONE. [Suspect]
     Active Substance: RISPERIDONE
     Route: 048

REACTIONS (3)
  - Deep vein thrombosis [Recovered/Resolved]
  - Myocardial infarction [Recovered/Resolved]
  - Sinus node dysfunction [Recovered/Resolved]
